FAERS Safety Report 24356999 (Version 1)
Quarter: 2024Q3

REPORT INFORMATION
  Report Type: Report from Study
  Country: CA (occurrence: CA)
  Receive Date: 20240924
  Receipt Date: 20240924
  Transmission Date: 20241017
  Serious: Yes (Other)
  Sender: SANDOZ
  Company Number: CA-SANDOZ-SDZ2024CA081548

PATIENT
  Sex: Male

DRUGS (2)
  1. HYRIMOZ [Suspect]
     Active Substance: ADALIMUMAB-ADAZ
     Indication: Crohn^s disease
     Dosage: 80 MG, QW (PREFILLED PEN)
     Route: 058
     Dates: start: 20210812, end: 2024
  2. HYRIMOZ [Suspect]
     Active Substance: ADALIMUMAB-ADAZ
     Dosage: 80 MG, Q2W
     Route: 058

REACTIONS (3)
  - Sleep apnoea syndrome [Unknown]
  - Product dose omission issue [Unknown]
  - Off label use [Unknown]
